FAERS Safety Report 8764689 (Version 1)
Quarter: 2012Q4

REPORT INFORMATION
  Report Type: 
  Country: US (occurrence: US)
  Receive Date: 20120831
  Receipt Date: 20120831
  Transmission Date: 20130627
  Serious: No
  Sender: FDA-Public Use
  Company Number: US-B.I. PHARMACEUTICALS,INC./RIDGEFIELD-2012-BP-20795BP

PATIENT
  Sex: Female

DRUGS (5)
  1. SPIRIVA [Suspect]
     Indication: CHRONIC OBSTRUCTIVE PULMONARY DISEASE
     Dosage: 18 mcg
     Route: 055
     Dates: start: 2009
  2. SPIRIVA [Suspect]
     Dosage: 18 mcg
     Route: 048
  3. BLOOD PRESSURE MEDICINE [Concomitant]
     Indication: BLOOD PRESSURE
  4. ADVAIR [Concomitant]
     Indication: CHRONIC OBSTRUCTIVE PULMONARY DISEASE
     Route: 055
     Dates: start: 2009
  5. DEPRESSION MEDICINE [Concomitant]
     Indication: DEPRESSION

REACTIONS (1)
  - Incorrect route of drug administration [Recovered/Resolved]
